FAERS Safety Report 6232300-7 (Version None)
Quarter: 2009Q2

REPORT INFORMATION
  Report Type: 
  Country: None (occurrence: None)
  Receive Date: 20090617
  Receipt Date: 20090613
  Transmission Date: 20091009
  Serious: Yes (Hospitalization)
  Sender: FDA-Public Use
  Company Number: US-PFIZER INC-2009201282

PATIENT
  Sex: Female
  Weight: 110.66 kg

DRUGS (14)
  1. NAPROXEN [Suspect]
     Indication: OSTEOARTHRITIS
     Dosage: UNK
     Route: 048
     Dates: start: 20090227, end: 20090409
  2. BLINDED *PLACEBO [Suspect]
     Indication: OSTEOARTHRITIS
     Dosage: UNK
     Route: 048
     Dates: start: 20090227, end: 20090409
  3. BLINDED CELECOXIB [Suspect]
     Indication: OSTEOARTHRITIS
     Dosage: UNK
     Route: 048
     Dates: start: 20090227, end: 20090409
  4. IBUPROFEN [Suspect]
     Indication: OSTEOARTHRITIS
     Dosage: UNK
     Route: 048
     Dates: start: 20090227, end: 20090409
  5. NAPROXEN [Suspect]
     Dosage: UNK
     Route: 048
     Dates: start: 20090227, end: 20090409
  6. NEXIUM [Concomitant]
     Indication: PROPHYLAXIS
     Dosage: 40 MG, 1X/DAY
     Route: 048
     Dates: start: 20090227, end: 20090409
  7. ACETYLSALICYLIC ACID [Concomitant]
     Dosage: UNK
     Route: 048
     Dates: start: 20070101
  8. GLIPIZIDE [Concomitant]
     Dosage: UNK
     Route: 048
     Dates: start: 20070101
  9. METFORMIN [Concomitant]
     Dosage: UNK
     Route: 048
     Dates: start: 20070101
  10. FEXOFENADINE HYDROCHLORIDE [Concomitant]
     Dosage: UNK
     Route: 048
     Dates: start: 20070101
  11. MONTELUKAST SODIUM [Concomitant]
     Dosage: UNK
     Route: 048
     Dates: start: 20070101
  12. XOPENEX [Concomitant]
     Dosage: UNK
     Dates: start: 20070101
  13. SPIRIVA [Concomitant]
     Dosage: UNK
     Route: 055
     Dates: start: 20070101
  14. LISINOPRIL [Concomitant]
     Dosage: UNK
     Route: 048
     Dates: start: 20070101

REACTIONS (1)
  - LOCALISED INTRAABDOMINAL FLUID COLLECTION [None]
